FAERS Safety Report 10365846 (Version 1)
Quarter: 2014Q1

REPORT INFORMATION
  Report Type: Spontaneous
  Country: US (occurrence: None)
  Receive Date: 20140306
  Receipt Date: 20140306
  Transmission Date: 20141002
  Serious: Yes (Hospitalization)
  Sender: FDA-Public Use
  Company Number: 163-21880-13092074

PATIENT
  Age: 63 Year
  Sex: Female

DRUGS (10)
  1. REVLIMID (LENALIDOMIDE) (25 MILLIGRAM, CAPSULES) [Suspect]
     Indication: PLASMA CELL MYELOMA
     Dosage: 25 MG, 14 IN 21 D, PO
     Route: 048
     Dates: start: 20130729, end: 20130811
  2. MVI (MVI) [Concomitant]
  3. SOTALOL (SOTALOL) (UNKNOWN) [Concomitant]
  4. FISH OIL (FISH OIL) (UNKNOWN) [Concomitant]
  5. VITAMIN D (ERGOCALCIFEROL) (UNKNOWN) [Concomitant]
  6. FOLIC ACID (FOLIC ACID) (UNKNOWN) [Concomitant]
  7. POTASSIUM CHLORIDE (POTASSIUM CHLORIDE) (UNKNOWN) [Concomitant]
  8. DEXAMETHASONE (DEXAMETHASONE) (UNKNOWN) [Concomitant]
  9. XARELTO (RIVAROXABAN) (UNKNOWN) [Concomitant]
  10. BUMEX (BUMETANIDE) (UNKNOWN) [Concomitant]

REACTIONS (1)
  - Cardiac failure congestive [None]
